FAERS Safety Report 23986887 (Version 2)
Quarter: 2024Q3

REPORT INFORMATION
  Report Type: Report from Study
  Country: US (occurrence: US)
  Receive Date: 20240618
  Receipt Date: 20240713
  Transmission Date: 20241016
  Serious: Yes (Hospitalization, Other)
  Sender: ABBVIE
  Company Number: US-ABBVIE-5732317

PATIENT
  Sex: Female

DRUGS (24)
  1. VENCLEXTA [Suspect]
     Active Substance: VENETOCLAX
     Indication: Chronic lymphocytic leukaemia
     Dosage: TAKE TWO 10MG TABS WITH FOOD DAILY WEEK 1
     Route: 048
     Dates: start: 20240415, end: 20240422
  2. ALLOPURINOL [Suspect]
     Active Substance: ALLOPURINOL
     Indication: Product used for unknown indication
     Route: 065
     Dates: start: 20240415, end: 20240422
  3. ATARAX [Concomitant]
     Active Substance: HYDROXYZINE HYDROCHLORIDE
     Indication: Product used for unknown indication
     Dosage: 25MG
  4. PEPCID [Concomitant]
     Active Substance: FAMOTIDINE
     Indication: Product used for unknown indication
     Dosage: TIME INTERVAL: AS NECESSARY
  5. RALOXIFENE [Concomitant]
     Active Substance: RALOXIFENE
     Indication: Product used for unknown indication
     Route: 048
  6. TIMOLOL [Concomitant]
     Active Substance: TIMOLOL
     Indication: Product used for unknown indication
     Route: 048
  7. FLONASE ALLERGY RELIEF [Concomitant]
     Active Substance: FLUTICASONE PROPIONATE
     Indication: Product used for unknown indication
     Dosage: FLUTICASONE NASAL SPRAY 50 MCG/ACTUATION
  8. GABAPENTIN [Concomitant]
     Active Substance: GABAPENTIN
     Indication: Product used for unknown indication
     Dosage: AT BEDTIME
     Route: 048
  9. GABAPENTIN [Concomitant]
     Active Substance: GABAPENTIN
     Indication: Product used for unknown indication
     Dosage: TIME INTERVAL: AS NECESSARY: 100 MG DURING DAY
  10. DENOSUMAB [Concomitant]
     Active Substance: DENOSUMAB
     Indication: Product used for unknown indication
     Dosage: DOSAGE: 60 MG/ML 60 MG/ML SYRINGE 60 MG SUBCUTANEOUSLY ONCE?ADMINISTER SQ INJECTION IN THE UPPER ...
     Route: 058
     Dates: start: 202004
  11. LEXAPRO [Concomitant]
     Active Substance: ESCITALOPRAM OXALATE
     Indication: Product used for unknown indication
     Dosage: 1/2 TABLET
  12. SYSTANE (HYPROMELLOSE 2910 (4000 MPA.S)) [Concomitant]
     Active Substance: HYPROMELLOSE 2910 (4000 MPA.S)
     Indication: Product used for unknown indication
     Dosage: PEG 400-PROPYLENE GLYCOL OPHTHALMIC DROPS 0.4 %-0.3 %
  13. PREDNISONE [Concomitant]
     Active Substance: PREDNISONE
     Indication: Abdominal discomfort
     Dosage: 20 MG?TAKE WITH FOOD TO PREVENT STOMACH UPSET. TAKE 3 DAILY FOR 5-DAYS, THEN STOP
     Route: 048
  14. ALPRAZOLAM [Concomitant]
     Active Substance: ALPRAZOLAM
     Indication: Anxiety
     Dosage: 0.25 MG 1 TABLET AS NEEDED
     Route: 048
  15. ZANUBRUTINIB [Suspect]
     Active Substance: ZANUBRUTINIB
     Indication: Chronic lymphocytic leukaemia
     Route: 065
     Dates: start: 20230523, end: 20231212
  16. CALCIUM [Concomitant]
     Active Substance: CALCIUM
     Indication: Product used for unknown indication
  17. VITAMIN D [Concomitant]
     Active Substance: VITAMIN D NOS
     Indication: Product used for unknown indication
  18. ACALABRUTINIB [Suspect]
     Active Substance: ACALABRUTINIB
     Indication: Product used for unknown indication
     Route: 065
     Dates: start: 20221109, end: 20221123
  19. NYSTATIN [Concomitant]
     Active Substance: NYSTATIN
     Indication: Product used for unknown indication
     Dosage: TIME INTERVAL: AS NECESSARY
  20. IBRUTINIB [Suspect]
     Active Substance: IBRUTINIB
     Indication: Chronic lymphocytic leukaemia
     Dosage: LAST ADMIN DATE:2019
     Route: 048
     Dates: start: 20190225, end: 201903
  21. IBRUTINIB [Suspect]
     Active Substance: IBRUTINIB
     Indication: Chronic lymphocytic leukaemia
     Dosage: LAST ADMIN DATE: MAR 2019 REDUCED TO 420 MG
     Route: 048
     Dates: start: 20190319
  22. IBRUTINIB [Suspect]
     Active Substance: IBRUTINIB
     Indication: Chronic lymphocytic leukaemia
     Dosage: RAISED BACK TO 420 MG
     Route: 048
     Dates: start: 20190330
  23. IBRUTINIB [Suspect]
     Active Substance: IBRUTINIB
     Indication: Chronic lymphocytic leukaemia
     Dosage: REDUCED TO 280 MG
     Route: 048
     Dates: start: 20210505, end: 20210617
  24. IBRUTINIB [Suspect]
     Active Substance: IBRUTINIB
     Indication: Chronic lymphocytic leukaemia
     Route: 048
     Dates: start: 20221221, end: 20230227

REACTIONS (28)
  - Rash [Not Recovered/Not Resolved]
  - Malaise [Unknown]
  - Adverse drug reaction [Not Recovered/Not Resolved]
  - Dyspnoea [Not Recovered/Not Resolved]
  - Pain [Unknown]
  - Fatigue [Unknown]
  - Insomnia [Unknown]
  - Nausea [Unknown]
  - Decreased appetite [Unknown]
  - Cough [Recovered/Resolved]
  - Diarrhoea [Unknown]
  - Stomatitis [Recovered/Resolved]
  - Memory impairment [Unknown]
  - Immune thrombocytopenia [Unknown]
  - Toxicity to various agents [Unknown]
  - Dizziness [Unknown]
  - Disorientation [Unknown]
  - Confusional state [Unknown]
  - Myalgia [Unknown]
  - Adrenal insufficiency [Unknown]
  - Drug intolerance [Unknown]
  - Osteopenia [Unknown]
  - Fibromyalgia [Unknown]
  - Arthralgia [Unknown]
  - Contusion [Unknown]
  - Diplopia [Unknown]
  - Osteoporosis [Unknown]
  - Tinnitus [Unknown]

NARRATIVE: CASE EVENT DATE: 20190101
